FAERS Safety Report 8614484 (Version 2)
Quarter: 2013Q3

REPORT INFORMATION
  Report Type: Spontaneous
  Country: US (occurrence: US)
  Receive Date: 20120614
  Receipt Date: 20130708
  Transmission Date: 20140515
  Serious: No
  Sender: FDA-Public Use
  Company Number: US-ASTRAZENECA-2012SE35617

PATIENT
  Age: 17268 Day
  Sex: Female

DRUGS (11)
  1. NEXIUM [Suspect]
     Indication: GASTROOESOPHAGEAL REFLUX DISEASE
     Dosage: TWO TIMES A DAY
     Route: 048
     Dates: start: 199001, end: 200002
  2. OMEPRAZOLE [Suspect]
     Route: 048
  3. ALENDRONATE SODIUM TABLETS USP [Concomitant]
  4. PREVACID [Concomitant]
  5. ZANTAC [Concomitant]
  6. TAGAMET [Concomitant]
  7. TUMS [Concomitant]
  8. ALKA SELTZER [Concomitant]
  9. MAGNESIA [Concomitant]
  10. MYLANTA [Concomitant]
  11. ROLAIDS [Concomitant]

REACTIONS (6)
  - Osteoporosis [Unknown]
  - Multiple fractures [Unknown]
  - Synovial cyst [Unknown]
  - Arthritis [Unknown]
  - Gastrointestinal disorder [Unknown]
  - Depression [Unknown]
